FAERS Safety Report 8058448-2 (Version None)
Quarter: 2012Q1

REPORT INFORMATION
  Report Type: 
  Country: None (occurrence: None)
  Receive Date: 20120120
  Receipt Date: 20120117
  Transmission Date: 20120608
  Serious: Yes (Hospitalization)
  Sender: FDA-Public Use
  Company Number: NL-PFIZER INC-2012014007

PATIENT

DRUGS (1)
  1. SUTENT [Suspect]
     Dosage: 50MG, 4/2 SCHEDULE

REACTIONS (2)
  - EYELID OEDEMA [None]
  - BLOOD TEST ABNORMAL [None]
